FAERS Safety Report 12461107 (Version 1)
Quarter: 2016Q2

REPORT INFORMATION
  Report Type: Spontaneous
  Country: US (occurrence: US)
  Receive Date: 20160613
  Receipt Date: 20160613
  Transmission Date: 20160815
  Serious: No
  Sender: FDA-Public Use
  Company Number: US-US WORLDMEDS, LLC-USW201509-000245

PATIENT
  Sex: Male

DRUGS (1)
  1. APOKYN [Suspect]
     Active Substance: APOMORPHINE HYDROCHLORIDE

REACTIONS (3)
  - Injection site pain [Unknown]
  - Injection site mass [Unknown]
  - Needle issue [Unknown]
